FAERS Safety Report 5736783-8 (Version None)
Quarter: 2008Q2

REPORT INFORMATION
  Report Type: 
  Country: None (occurrence: None)
  Receive Date: 20080513
  Receipt Date: 20080507
  Transmission Date: 20081010
  Serious: Yes (Other)
  Sender: FDA-Public Use
  Company Number: US-GENENTECH-260698

PATIENT
  Age: 50 Year
  Sex: Female

DRUGS (4)
  1. HERCEPTIN [Suspect]
     Indication: BREAST CANCER
     Dosage: 4 MG/KG, SINGLE
     Route: 042
     Dates: start: 20071101
  2. HERCEPTIN [Suspect]
     Dosage: 2 MG/KG, X2
     Route: 042
  3. HERCEPTIN [Suspect]
     Dosage: 6 MG/KG, Q3W
     Route: 042
  4. TAXOL [Concomitant]
     Indication: BREAST CANCER

REACTIONS (1)
  - HEPATIC ENZYME INCREASED [None]
